FAERS Safety Report 4515117-0 (Version None)
Quarter: 2004Q4

REPORT INFORMATION
  Report Type: 
  Country: None (occurrence: None)
  Receive Date: 20041201
  Receipt Date: 20041115
  Transmission Date: 20050328
  Serious: Yes (Other)
  Sender: FDA-Public Use
  Company Number: GB-JNJFOC-20041103941

PATIENT
  Age: 55 Year
  Sex: Female

DRUGS (6)
  1. DURAGESIC [Suspect]
     Indication: ARTHRITIS
     Dosage: DOSE: 200-225UG/HR
     Route: 062
  2. TRAMADOL [Suspect]
     Indication: DRUG USE FOR UNKNOWN INDICATION
     Route: 065
  3. PROPOXYPHENE HCL AND ACETAMINOPHEN [Suspect]
  4. PROPOXYPHENE HCL AND ACETAMINOPHEN [Suspect]
     Indication: DRUG USE FOR UNKNOWN INDICATION
  5. CLONIDINE [Suspect]
     Indication: DRUG USE FOR UNKNOWN INDICATION
  6. PROZAC [Suspect]
     Indication: DRUG USE FOR UNKNOWN INDICATION

REACTIONS (4)
  - AMNESIA [None]
  - CONFUSIONAL STATE [None]
  - DRUG INTERACTION [None]
  - SLEEP DISORDER [None]
